FAERS Safety Report 21163405 (Version 1)
Quarter: 2022Q3

REPORT INFORMATION
  Report Type: Spontaneous
  Country: JP (occurrence: JP)
  Receive Date: 20220802
  Receipt Date: 20220802
  Transmission Date: 20221027
  Serious: Yes (Other)
  Sender: FDA-Public Use
  Company Number: JP-teijin-202201330_FE_P_1

PATIENT
  Age: 3 Decade
  Sex: Male

DRUGS (1)
  1. FEBUXOSTAT [Suspect]
     Active Substance: FEBUXOSTAT
     Indication: Hyperuricaemia
     Dosage: 10 MILLIGRAM, QD
     Route: 048

REACTIONS (3)
  - Lipase increased [Recovered/Resolved]
  - Blood trypsin increased [Recovered/Resolved]
  - Amylase increased [Recovered/Resolved]
